FAERS Safety Report 11778686 (Version 2)
Quarter: 2016Q1

REPORT INFORMATION
  Report Type: Spontaneous
  Country: US (occurrence: US)
  Receive Date: 20151125
  Receipt Date: 20160222
  Transmission Date: 20160525
  Serious: No
  Sender: FDA-Public Use
  Company Number: US-ASTRAZENECA-2015SF06616

PATIENT
  Sex: Female
  Weight: 100.2 kg

DRUGS (4)
  1. LOVONOX [Concomitant]
     Indication: DIABETES MELLITUS
  2. METFORMIN [Concomitant]
     Active Substance: METFORMIN HYDROCHLORIDE
     Indication: DIABETES MELLITUS
  3. BYDUREON [Suspect]
     Active Substance: EXENATIDE
     Indication: TYPE 2 DIABETES MELLITUS
     Route: 058
     Dates: start: 201510, end: 201511
  4. LEVEMIR [Concomitant]
     Active Substance: INSULIN DETEMIR
     Indication: DIABETES MELLITUS

REACTIONS (10)
  - Influenza [Recovered/Resolved]
  - Paraesthesia oral [Recovered/Resolved]
  - Pruritus generalised [Unknown]
  - Rash generalised [Unknown]
  - Oropharyngeal discomfort [Recovered/Resolved]
  - Injection site pruritus [Unknown]
  - Injection site rash [Unknown]
  - Abdominal discomfort [Unknown]
  - Nausea [Unknown]
  - Urticaria [Recovered/Resolved]
